FAERS Safety Report 6877237-5 (Version None)
Quarter: 2010Q3

REPORT INFORMATION
  Report Type: 
  Country: None (occurrence: None)
  Receive Date: 20100727
  Receipt Date: 20090728
  Transmission Date: 20110219
  Serious: No
  Sender: FDA-Public Use
  Company Number: US-ABBOTT-09P-163-0588482-00

PATIENT
  Sex: Male

DRUGS (3)
  1. SYNTHROID [Suspect]
     Indication: HYPOTHYROIDISM
     Dates: start: 20090710
  2. CICILOPIROX GEL [Concomitant]
     Indication: PSORIASIS
     Route: 061
  3. CLOBEX SHAMPPO [Concomitant]
     Indication: PSORIASIS
     Route: 061

REACTIONS (3)
  - NERVOUSNESS [None]
  - PALPITATIONS [None]
  - RASH [None]
